FAERS Safety Report 12159276 (Version 5)
Quarter: 2017Q4

REPORT INFORMATION
  Report Type: Spontaneous
  Country: TR (occurrence: TR)
  Receive Date: 20160308
  Receipt Date: 20171115
  Transmission Date: 20180320
  Serious: Yes (Hospitalization)
  Sender: FDA-Public Use
  Company Number: TU-MERCK KGAA-7323752

PATIENT
  Age: 56 Year
  Sex: Male
  Weight: 100 kg

DRUGS (3)
  1. NOVOTHYROX [Suspect]
     Active Substance: LEVOTHYROXINE SODIUM
     Route: 048
  2. NOVOTHYROX [Suspect]
     Active Substance: LEVOTHYROXINE SODIUM
     Dates: end: 20170925
  3. NOVOTHYROX [Suspect]
     Active Substance: LEVOTHYROXINE SODIUM
     Indication: HYPOTHYROIDISM
     Route: 048
     Dates: start: 2005

REACTIONS (15)
  - Hypohidrosis [None]
  - Nasal dryness [None]
  - Dyspepsia [Recovered/Resolved]
  - Weight increased [Recovering/Resolving]
  - Aphthous ulcer [Unknown]
  - Hernia [Recovered/Resolved]
  - Hypokinesia [Recovering/Resolving]
  - Impaired quality of life [Recovering/Resolving]
  - Muscle strain [Recovering/Resolving]
  - Dehydration [Recovered/Resolved]
  - Gastrointestinal disorder [None]
  - Wrong technique in product usage process [None]
  - Dry mouth [Not Recovered/Not Resolved]
  - Dry skin [Recovering/Resolving]
  - Abdominal distension [Recovering/Resolving]

NARRATIVE: CASE EVENT DATE: 2006
